FAERS Safety Report 7229356-1 (Version None)
Quarter: 2011Q1

REPORT INFORMATION
  Report Type: 
  Country: None (occurrence: None)
  Receive Date: 20110117
  Receipt Date: 20101222
  Transmission Date: 20110831
  Serious: Yes (Hospitalization)
  Sender: FDA-Public Use
  Company Number: A0801188A

PATIENT
  Age: 46 Year
  Sex: Male

DRUGS (5)
  1. AVANDAMET [Suspect]
     Indication: DIABETES MELLITUS
     Route: 048
  2. ADALAT [Concomitant]
  3. ZESTRIL [Concomitant]
  4. LIPITOR [Concomitant]
  5. AVANDIA [Suspect]
     Indication: DIABETES MELLITUS
     Route: 048
     Dates: start: 19990101, end: 20070101

REACTIONS (7)
  - FLUID RETENTION [None]
  - OEDEMA [None]
  - DYSPNOEA [None]
  - MYOCARDIAL INFARCTION [None]
  - WEIGHT INCREASED [None]
  - VISION BLURRED [None]
  - CHEST PAIN [None]
